FAERS Safety Report 9148511 (Version 1)
Quarter: 2013Q1

REPORT INFORMATION
  Report Type: Spontaneous
  Country: US (occurrence: None)
  Receive Date: 20130228
  Receipt Date: 20130228
  Transmission Date: 20140127
  Serious: Yes (Other)
  Sender: FDA-Public Use
  Company Number: None

PATIENT
  Age: 83 Year
  Sex: Female

DRUGS (1)
  1. IBANDRONATE [Suspect]
     Indication: BONE LOSS
     Dosage: 1 DOSE EVERY MONTH ORAL
     Route: 048

REACTIONS (1)
  - Vasodilatation [None]
